FAERS Safety Report 13737299 (Version 1)
Quarter: 2017Q3

REPORT INFORMATION
  Report Type: Spontaneous
  Country: FR (occurrence: FR)
  Receive Date: 20170710
  Receipt Date: 20170710
  Transmission Date: 20171127
  Serious: Yes (Other)
  Sender: FDA-Public Use
  Company Number: FR-BAYER-2017-130159

PATIENT
  Age: 36 Year
  Sex: Female

DRUGS (1)
  1. MIRENA [Suspect]
     Active Substance: LEVONORGESTREL
     Indication: CONTRACEPTION
     Dosage: 20 MCG/24HR, CONT
     Route: 015
     Dates: start: 20140103, end: 20170330

REACTIONS (10)
  - Amnesia [Unknown]
  - Asthenia [Unknown]
  - Nervousness [Unknown]
  - Abdominal pain [Unknown]
  - Back pain [Unknown]
  - Acne [Unknown]
  - Loss of libido [Unknown]
  - Migraine [Unknown]
  - Weight increased [Unknown]
  - Nausea [Unknown]

NARRATIVE: CASE EVENT DATE: 2014
